FAERS Safety Report 13386169 (Version 1)
Quarter: 2017Q1

REPORT INFORMATION
  Report Type: Spontaneous
  Country: US (occurrence: US)
  Receive Date: 20170330
  Receipt Date: 20170330
  Transmission Date: 20170429
  Serious: No
  Sender: FDA-Public Use
  Company Number: US-BAUSCH-BL-2016-032568

PATIENT
  Sex: Male
  Weight: 72.64 kg

DRUGS (1)
  1. JUBLIA [Suspect]
     Active Substance: EFINACONAZOLE
     Indication: ONYCHOMYCOSIS
     Dosage: TOPICALLY ON TOE NAIL
     Route: 061
     Dates: start: 2016

REACTIONS (2)
  - Nail disorder [Recovered/Resolved]
  - Nail discolouration [Recovered/Resolved]
